FAERS Safety Report 12758743 (Version 1)
Quarter: 2016Q3

REPORT INFORMATION
  Report Type: Spontaneous
  Country: US (occurrence: US)
  Receive Date: 20160915
  Receipt Date: 20160915
  Transmission Date: 20161109
  Serious: No
  Sender: FDA-Public Use
  Company Number: None

PATIENT
  Age: 66 Year
  Sex: Female

DRUGS (2)
  1. GAMMAGARD [Suspect]
     Active Substance: HUMAN IMMUNOGLOBULIN G
     Indication: IMMUNODEFICIENCY COMMON VARIABLE
     Dosage: 12.5GM EVERY WEEK SQ
     Route: 058
     Dates: start: 201603
  2. GAMMAGARD [Suspect]
     Active Substance: HUMAN IMMUNOGLOBULIN G
     Indication: IMMUNODEFICIENCY COMMON VARIABLE
     Dosage: 10GM EVERY WEEK SQ
     Route: 058
     Dates: start: 201603, end: 201603

REACTIONS (2)
  - Headache [None]
  - Chest discomfort [None]

NARRATIVE: CASE EVENT DATE: 20160720
